FAERS Safety Report 7749428-2 (Version None)
Quarter: 2011Q3

REPORT INFORMATION
  Report Type: 
  Country: None (occurrence: None)
  Receive Date: 20110914
  Receipt Date: 20110902
  Transmission Date: 20111222
  Serious: Yes (Life-Threatening, Hospitalization, Other)
  Sender: FDA-Public Use
  Company Number: JP-CELGENEUS-087-50794-11090600

PATIENT
  Sex: Female
  Weight: 47 kg

DRUGS (16)
  1. ISONIAZID [Concomitant]
     Route: 065
  2. DAIPHEN [Concomitant]
     Dosage: 500 MILLIGRAM
     Route: 048
  3. TRANSFUSION [Concomitant]
     Route: 041
  4. ACYCLOVIR [Concomitant]
     Route: 065
     Dates: start: 20110526, end: 20110531
  5. VIDAZA [Suspect]
     Dosage: 75 MILLIGRAM
     Route: 041
     Dates: start: 20110326, end: 20110401
  6. VIDAZA [Suspect]
     Dosage: 75 MILLIGRAM
     Route: 041
     Dates: start: 20110425, end: 20110501
  7. POLAPREZINC [Concomitant]
     Dosage: 150 MILLIGRAM
     Route: 048
     Dates: start: 20110517
  8. NEUPOGEN [Concomitant]
     Route: 065
     Dates: start: 20110414
  9. ITRACONAZOLE [Concomitant]
     Dosage: 100 MILLIGRAM
     Route: 048
  10. RANITIDINE [Concomitant]
     Dosage: 150 MILLIGRAM
     Route: 048
  11. NEUPOGEN [Concomitant]
     Route: 065
     Dates: start: 20110516
  12. SENNOSIDE [Concomitant]
     Dosage: 24 MILLIGRAM
     Route: 048
  13. KYTRIL [Concomitant]
     Dosage: 3 MILLIGRAM
     Route: 041
     Dates: start: 20110425, end: 20110501
  14. RABEPRAZOLE SODIUM [Concomitant]
     Dosage: 10 MILLIGRAM
     Route: 048
     Dates: start: 20110416
  15. NEUTROGIN [Concomitant]
     Dosage: 100 MICROGRAM
     Route: 058
     Dates: start: 20110516, end: 20110522
  16. NEUTROGIN [Concomitant]
     Dosage: 100 MICROGRAM
     Route: 058
     Dates: start: 20110414, end: 20110521

REACTIONS (7)
  - SEPSIS [None]
  - ALANINE AMINOTRANSFERASE INCREASED [None]
  - ASPARTATE AMINOTRANSFERASE INCREASED [None]
  - CHOLANGITIS [None]
  - FEBRILE NEUTROPENIA [None]
  - NEUTROPENIA [None]
  - HERPES SIMPLEX [None]
